FAERS Safety Report 13683327 (Version 1)
Quarter: 2017Q2

REPORT INFORMATION
  Report Type: Spontaneous
  Country: US (occurrence: US)
  Receive Date: 20170623
  Receipt Date: 20170623
  Transmission Date: 20170830
  Serious: No
  Sender: FDA-Public Use
  Company Number: US-IPSEN BIOPHARMACEUTICALS, INC.-2016-09468

PATIENT
  Age: 60 Year
  Sex: Female

DRUGS (14)
  1. PERLANE [Suspect]
     Active Substance: HYALURONIC ACID
     Indication: SKIN WRINKLING
  2. DYSPORT [Suspect]
     Active Substance: ABOBOTULINUMTOXINA
     Indication: SKIN COSMETIC PROCEDURE
     Dosage: NOT REPORTED
     Route: 065
     Dates: start: 2016, end: 2016
  3. RESTYLANE SILK [Suspect]
     Active Substance: HYALURONIC ACID
     Indication: SKIN WRINKLING
     Dates: start: 2016
  4. SCULPTRA [Suspect]
     Active Substance: POLYLACTIDE, L-
     Indication: SKIN WRINKLING
     Dates: start: 20160612
  5. RESTYLANE LYFT [Suspect]
     Active Substance: HYALURONIC ACID
     Indication: SKIN WRINKLING
  6. PERLANE [Suspect]
     Active Substance: HYALURONIC ACID
     Indication: SKIN WRINKLING
     Dates: start: 20160911
  7. RESTYLANE LYFT [Suspect]
     Active Substance: HYALURONIC ACID
     Indication: SKIN WRINKLING
     Dates: start: 20160612
  8. RESTYLANE LYFT [Suspect]
     Active Substance: HYALURONIC ACID
     Indication: SKIN WRINKLING
     Dates: start: 20160911
  9. SCULPTRA [Suspect]
     Active Substance: POLYLACTIDE, L-
     Indication: SKIN WRINKLING
     Dates: start: 2016
  10. RESTYLANE LYFT [Suspect]
     Active Substance: HYALURONIC ACID
     Indication: SKIN WRINKLING
  11. PERLANE [Suspect]
     Active Substance: HYALURONIC ACID
     Indication: SKIN WRINKLING
  12. SCULPTRA [Suspect]
     Active Substance: POLYLACTIDE, L-
     Dates: start: 20160911
  13. RESTYLANE LYFT [Suspect]
     Active Substance: HYALURONIC ACID
     Indication: SKIN WRINKLING
     Dates: start: 2016
  14. PERLANE [Suspect]
     Active Substance: HYALURONIC ACID
     Indication: SKIN WRINKLING
     Dates: start: 20160612

REACTIONS (4)
  - Rheumatoid arthritis [Unknown]
  - Swelling face [Not Recovered/Not Resolved]
  - Contusion [Unknown]
  - Swelling [Unknown]

NARRATIVE: CASE EVENT DATE: 2016
